FAERS Safety Report 4636006-7 (Version None)
Quarter: 2005Q2

REPORT INFORMATION
  Report Type: 
  Country: None (occurrence: None)
  Receive Date: 20050415
  Receipt Date: 20030522
  Transmission Date: 20051028
  Serious: Yes (Hospitalization)
  Sender: FDA-Public Use
  Company Number: CA-SANOFI-SYNTHELABO-D01200300673

PATIENT
  Sex: Female
  Weight: 56.5 kg

DRUGS (7)
  1. SR57746 OR PLACEBO [Suspect]
     Route: 048
     Dates: start: 20030331
  2. OXALIPLATIN [Suspect]
     Route: 042
     Dates: start: 20030508, end: 20030508
  3. FLUOROURACIL [Suspect]
     Dosage: 400 MG/M2 AS IV BOLUS THEN 600 MG/M2 AS 22 HOURS CONTINUOUS INFUSION D1-D2 Q2W
     Route: 042
     Dates: start: 20030508, end: 20030509
  4. LEUCOVORIN CALCIUM [Suspect]
     Dosage: 200 MG/M2 AS 2 HOURS INFUSION ON D1-D2 Q2W
     Route: 042
     Dates: start: 20030508, end: 20030509
  5. ATIVAN [Concomitant]
     Dosage: UNK
     Route: 065
     Dates: start: 20030331
  6. MORPHINE SULFATE [Concomitant]
     Dosage: UNK
     Route: 065
     Dates: start: 20030304
  7. MAXERAN [Concomitant]
     Dosage: UNK
     Route: 065
     Dates: start: 20030304

REACTIONS (5)
  - BACILLUS INFECTION [None]
  - BACTERAEMIA [None]
  - HAEMOGLOBIN DECREASED [None]
  - KLEBSIELLA INFECTION [None]
  - VAGINAL INFECTION [None]
